FAERS Safety Report 4393212-7 (Version None)
Quarter: 2004Q3

REPORT INFORMATION
  Report Type: 
  Country: None (occurrence: None)
  Receive Date: 20040701
  Receipt Date: 20040614
  Transmission Date: 20050211
  Serious: Yes (Hospitalization)
  Sender: FDA-Public Use
  Company Number: JP-JNJFOC-20040306286

PATIENT
  Age: 59 Year
  Sex: Female
  Weight: 58.7 kg

DRUGS (10)
  1. REMICADE [Suspect]
     Indication: RHEUMATOID ARTHRITIS
     Dosage: 3 MG/KG, 1 IN 1 AS NECESSARY, INTRAVENOUS DRIP
     Route: 041
     Dates: start: 20031212, end: 20031212
  2. REMICADE [Suspect]
     Indication: RHEUMATOID ARTHRITIS
     Dosage: 3 MG/KG, 1 IN 1 AS NECESSARY, INTRAVENOUS DRIP
     Route: 041
     Dates: start: 20031224, end: 20031224
  3. REMICADE [Suspect]
     Indication: RHEUMATOID ARTHRITIS
     Dosage: 3 MG/KG, 1 IN 1 AS NECESSARY, INTRAVENOUS DRIP
     Route: 041
     Dates: start: 20040121, end: 20040121
  4. STEROIDS (CORTICOSTEROID NOS) [Suspect]
  5. RHEUMATREX [Concomitant]
  6. PREDNISOLONE [Concomitant]
  7. ROCALTROL [Concomitant]
  8. FOLACIN (FOLACIN) [Concomitant]
  9. BENET (ALL OTHER THERAPEUTIC PRODUCTS) [Concomitant]
  10. NEORAL [Concomitant]

REACTIONS (4)
  - DRUG INEFFECTIVE [None]
  - DRUG INTERACTION [None]
  - FEMUR FRACTURE [None]
  - HUMERUS FRACTURE [None]
